FAERS Safety Report 19032734 (Version 1)
Quarter: 2021Q1

REPORT INFORMATION
  Report Type: Spontaneous
  Country: US (occurrence: US)
  Receive Date: 20210319
  Receipt Date: 20210319
  Transmission Date: 20210420
  Serious: Yes (Hospitalization)
  Sender: FDA-Public Use
  Company Number: US-PFIZER INC-2021264829

PATIENT
  Age: 65 Year
  Sex: Male
  Weight: 104.33 kg

DRUGS (6)
  1. FUROSEMIDE. [Concomitant]
     Active Substance: FUROSEMIDE
     Indication: BLOOD PRESSURE ABNORMAL
     Dosage: 40 MG
     Dates: start: 20210120
  2. SPIRONOLACTONE. [Suspect]
     Active Substance: SPIRONOLACTONE
     Indication: PROPHYLAXIS
     Dosage: UNK
     Dates: start: 202101
  3. LASIX [Suspect]
     Active Substance: FUROSEMIDE
     Dosage: UNK
     Dates: start: 202101
  4. ATORVASTATIN CALCIUM. [Suspect]
     Active Substance: ATORVASTATIN CALCIUM
     Indication: CARDIAC DISORDER
     Dosage: 40 MG, 1X/DAY
     Dates: start: 2011
  5. ALDACTONE [Suspect]
     Active Substance: SPIRONOLACTONE
     Indication: PROPHYLAXIS
     Dosage: UNK
     Dates: start: 202101
  6. LIPITOR [Suspect]
     Active Substance: ATORVASTATIN CALCIUM
     Indication: CARDIAC DISORDER
     Dosage: 40 MG, 1X/DAY (90 OVAL WHITE, NIGHT)
     Dates: start: 2011

REACTIONS (5)
  - Gait disturbance [Unknown]
  - Dizziness [Not Recovered/Not Resolved]
  - Loss of personal independence in daily activities [Unknown]
  - Walking aid user [Unknown]
  - Influenza [Unknown]
